FAERS Safety Report 9802932 (Version 1)
Quarter: 2014Q1

REPORT INFORMATION
  Report Type: Spontaneous
  Country: US (occurrence: None)
  Receive Date: 20140106
  Receipt Date: 20140106
  Transmission Date: 20141002
  Serious: No
  Sender: FDA-Public Use
  Company Number: None

PATIENT
  Age: 42 Year
  Sex: Female
  Weight: 74.84 kg

DRUGS (1)
  1. CRESTOR [Suspect]
     Indication: BLOOD CHOLESTEROL INCREASED
     Dosage: 1 PILL
     Route: 048

REACTIONS (8)
  - Depression [None]
  - Anxiety [None]
  - Suicidal ideation [None]
  - Fatigue [None]
  - Muscular weakness [None]
  - Pain [None]
  - Confusional state [None]
  - Disturbance in attention [None]
